FAERS Safety Report 9847647 (Version 1)
Quarter: 2014Q1

REPORT INFORMATION
  Report Type: Spontaneous
  Country: US (occurrence: US)
  Receive Date: 20140128
  Receipt Date: 20140128
  Transmission Date: 20141002
  Serious: Yes (Death)
  Sender: FDA-Public Use
  Company Number: US-ROCHE-1340412

PATIENT
  Age: 69 Year
  Sex: Male
  Weight: 86.71 kg

DRUGS (1)
  1. XELODA [Suspect]
     Indication: COLON CANCER
     Route: 048
     Dates: start: 20131206

REACTIONS (1)
  - Death [Fatal]
